FAERS Safety Report 14067839 (Version 2)
Quarter: 2018Q3

REPORT INFORMATION
  Report Type: Spontaneous
  Country: US (occurrence: US)
  Receive Date: 20171009
  Receipt Date: 20180831
  Transmission Date: 20181010
  Serious: No
  Sender: FDA-Public Use
  Company Number: US-BIOGEN-2017BI00467850

PATIENT
  Sex: Male

DRUGS (3)
  1. TECFIDERA [Suspect]
     Active Substance: DIMETHYL FUMARATE
     Indication: MULTIPLE SCLEROSIS
     Route: 048
     Dates: start: 20140602, end: 20170901
  2. AVONEX [Concomitant]
     Active Substance: INTERFERON BETA-1A
     Route: 030
     Dates: start: 20110630, end: 20140903
  3. TECFIDERA [Suspect]
     Active Substance: DIMETHYL FUMARATE
     Route: 048
     Dates: start: 20170922, end: 20171130

REACTIONS (2)
  - Drug ineffective [Unknown]
  - Pruritus [Unknown]
